FAERS Safety Report 10202261 (Version 1)
Quarter: 2014Q2

REPORT INFORMATION
  Report Type: Spontaneous
  Country: US (occurrence: US)
  Receive Date: 20140528
  Receipt Date: 20140528
  Transmission Date: 20141212
  Serious: No
  Sender: FDA-Public Use
  Company Number: US-BRISTOL-MYERS SQUIBB COMPANY-20208203

PATIENT
  Age: 74 Year
  Sex: Male
  Weight: 80.72 kg

DRUGS (1)
  1. METFORMIN HCL TABS [Suspect]
     Indication: TYPE 2 DIABETES MELLITUS
     Dosage: ACTUAL DOSE:TABS 1000 MG

REACTIONS (1)
  - Wrong technique in drug usage process [Unknown]
